FAERS Safety Report 23299573 (Version 4)
Quarter: 2024Q2

REPORT INFORMATION
  Report Type: Report from Study
  Country: US (occurrence: US)
  Receive Date: 20231215
  Receipt Date: 20240403
  Transmission Date: 20240716
  Serious: Yes (Other)
  Sender: FDA-Public Use
  Company Number: US-HORIZON THERAPEUTICS-HZN-2023-010636

PATIENT

DRUGS (8)
  1. TEPEZZA [Suspect]
     Active Substance: TEPROTUMUMAB-TRBW
     Indication: Endocrine ophthalmopathy
     Dosage: FIRST INFUSION (FIRST ROUND)
     Route: 042
     Dates: start: 20200325
  2. TEPEZZA [Suspect]
     Active Substance: TEPROTUMUMAB-TRBW
     Dosage: 1773 MG, EVERY 3 WEEKS (FIRST INFUSION OF SECOND ROUND )
     Route: 065
     Dates: start: 20230724
  3. TEPEZZA [Suspect]
     Active Substance: TEPROTUMUMAB-TRBW
     Dosage: 1773 MG, EVERY 3 WEEKS
     Route: 065
     Dates: start: 20230815
  4. TEPEZZA [Suspect]
     Active Substance: TEPROTUMUMAB-TRBW
     Dosage: 1773 MG, EVERY 3 WEEKS
     Route: 065
     Dates: start: 20230905
  5. TEPEZZA [Suspect]
     Active Substance: TEPROTUMUMAB-TRBW
     Dosage: 1773 MG, EVERY 3 WEEKS
     Route: 065
     Dates: start: 20231003
  6. TEPEZZA [Suspect]
     Active Substance: TEPROTUMUMAB-TRBW
     Dosage: 1773 MG, EVERY 3 WEEKS
     Route: 065
     Dates: start: 20231024
  7. TEPEZZA [Suspect]
     Active Substance: TEPROTUMUMAB-TRBW
     Dosage: 1773 MG, EVERY 3 WEEKS
     Route: 065
     Dates: start: 20231116
  8. TEPEZZA [Suspect]
     Active Substance: TEPROTUMUMAB-TRBW
     Dosage: 1773 MG, EVERY 3 WEEKS, 8TH DOSE
     Route: 065

REACTIONS (3)
  - Colitis [Unknown]
  - Inappropriate schedule of product administration [Unknown]
  - Off label use [Unknown]
